FAERS Safety Report 7948428-7 (Version None)
Quarter: 2011Q4

REPORT INFORMATION
  Report Type: 
  Country: None (occurrence: None)
  Receive Date: 20111130
  Receipt Date: 20110818
  Transmission Date: 20120403
  Serious: Yes (Life-Threatening, Hospitalization)
  Sender: FDA-Public Use
  Company Number: JP-BAYER-2011-052309

PATIENT
  Age: 6 Month
  Sex: Male
  Weight: 8 kg

DRUGS (11)
  1. KOGENATE FS [Suspect]
     Dosage: 140 IU/KG (1000 IU), BID
     Route: 042
     Dates: start: 20110607
  2. KOGENATE FS [Suspect]
     Dosage: 50 IU PER KG
     Route: 042
     Dates: start: 20110604
  3. GLYCEREB [Concomitant]
     Indication: REDUCTION OF INCREASED INTRACRANIAL PRESSURE
     Dosage: DAILY DOSE 225 ML
     Route: 041
     Dates: start: 20110507, end: 20110510
  4. PHENOBARBITAL SODIUM 100MG CAP [Concomitant]
     Indication: CONVULSION PROPHYLAXIS
     Dosage: DAILY DOSE 37.5 MG
     Route: 042
     Dates: start: 20110507, end: 20110508
  5. KOGENATE FS [Suspect]
     Indication: FACTOR VIII DEFICIENCY
     Dosage: DAILY DOSE 250 IU
     Route: 042
     Dates: start: 20110516, end: 20110523
  6. KOGENATE FS [Suspect]
     Dosage: 70 IU/KG (500 IU), BID
     Route: 042
     Dates: start: 20110601
  7. KOGENATE FS [Suspect]
     Dosage: DAILY DOSE 800 IU
     Route: 042
     Dates: start: 20110507, end: 20110507
  8. PHENOBARBITAL TAB [Concomitant]
     Indication: CONVULSION PROPHYLAXIS
     Dosage: DAILY DOSE 40 MG
     Route: 048
     Dates: start: 20110509
  9. KOGENATE FS [Suspect]
     Dosage: DAILY DOSE 500 IU
     Route: 042
     Dates: start: 20110508, end: 20110515
  10. KOGENATE FS [Suspect]
     Dosage: 250 IU/KG (2000 IU), BID
     Route: 042
     Dates: start: 20110608
  11. KOGENATE FS [Suspect]
     Dosage: 5
     Dates: start: 20110505

REACTIONS (5)
  - SUBDURAL HAEMORRHAGE [None]
  - CEREBRAL HAEMORRHAGE [None]
  - PYREXIA [None]
  - FACTOR VIII INHIBITION [None]
  - VOMITING [None]
